FAERS Safety Report 4928974-0 (Version None)
Quarter: 2006Q1

REPORT INFORMATION
  Report Type: 
  Country: None (occurrence: None)
  Receive Date: 20060301
  Receipt Date: 20060217
  Transmission Date: 20060701
  Serious: Yes (Hospitalization)
  Sender: FDA-Public Use
  Company Number: JP-GLAXOSMITHKLINE-B0412929A

PATIENT
  Age: 73 Year
  Sex: Male
  Weight: 49 kg

DRUGS (1)
  1. SERETIDE [Suspect]
     Indication: CHRONIC OBSTRUCTIVE PULMONARY DISEASE
     Route: 055
     Dates: start: 20050705, end: 20060215

REACTIONS (2)
  - MYCOBACTERIAL INFECTION [None]
  - PULMONARY TUBERCULOSIS [None]
